FAERS Safety Report 8447316-X (Version None)
Quarter: 2012Q2

REPORT INFORMATION
  Report Type: 
  Country: None (occurrence: None)
  Receive Date: 20120619
  Receipt Date: 20120613
  Transmission Date: 20120825
  Serious: Yes (Hospitalization, Other)
  Sender: FDA-Public Use
  Company Number: PHEH2007US01093

PATIENT
  Sex: Female

DRUGS (52)
  1. ZOMETA [Suspect]
     Indication: RESORPTION BONE INCREASED
     Route: 042
     Dates: start: 20020506, end: 20020805
  2. KEFLEX [Concomitant]
     Dosage: 500 MG, UNK
  3. ACETAMINOPHEN W/ CODEINE [Concomitant]
  4. ABRAXANE [Concomitant]
  5. IBUPROFEN (ADVIL) [Concomitant]
  6. CLINDAMYCIN [Concomitant]
     Dosage: 300 MG, UNK
  7. MS CONTIN [Concomitant]
     Dosage: 100 MG, UNK
  8. METHADOSE [Concomitant]
     Dosage: 10 MG, UNK
  9. FASLODEX [Concomitant]
  10. AREDIA [Suspect]
     Indication: RESORPTION BONE INCREASED
     Dosage: 90 MG,
     Route: 042
     Dates: start: 20010402, end: 20020204
  11. AMOXICILLIN [Concomitant]
     Dosage: 500 MG, UNK
  12. IONAMIN [Concomitant]
     Dosage: 15 MG, UNK
  13. OXYCONTIN [Concomitant]
     Dosage: 80 MG, UNK
  14. PROPOXYPHENE NAPSYLATE W/ ACETAMINOPHEN [Concomitant]
  15. ALOXI [Concomitant]
  16. DIPHENHYDRAMINE HYDROCHLORIDE [Concomitant]
  17. PACLITAXEL [Concomitant]
  18. XANAX [Concomitant]
  19. LORAZEPAM [Concomitant]
     Dosage: 1 MG, UNK
  20. TEMOVATE [Concomitant]
     Dosage: 0.05 %, UNK
  21. OXYCODONE HCL [Concomitant]
     Dosage: 80 MG, UNK
  22. FUROSEMIDE [Concomitant]
     Dosage: 20 MG, UNK
  23. SODIUM CHLORIDE [Concomitant]
  24. ZANTAC [Concomitant]
  25. BACTROBAN                               /NET/ [Concomitant]
     Dosage: 2 %, UNK
  26. CEPHALEXIN [Concomitant]
     Dosage: 500 MG, UNK
  27. AROMASIN [Concomitant]
     Dosage: 25 MG, UNK
  28. DEXAMETHASONE [Concomitant]
  29. LASIX [Concomitant]
  30. NAPROXEN (ALEVE) [Concomitant]
  31. RADIATION [Concomitant]
  32. AREDIA [Suspect]
     Dates: start: 20021105, end: 20060220
  33. VICODIN [Concomitant]
     Dosage: 500 MG, UNK
  34. AMBIEN [Concomitant]
     Dosage: 10 MG, UNK
  35. CARBOPLATIN [Concomitant]
  36. GEMZAR [Concomitant]
  37. TYLENOL W/ CODEINE [Concomitant]
  38. LETROZOLE [Concomitant]
  39. LAMICTAL [Concomitant]
     Dosage: 200 MG, UNK
  40. DILAUDID [Concomitant]
     Dosage: 4 MG, UNK
  41. MORPHINE SULFATE [Concomitant]
     Dosage: 15 UKN, UNK
  42. GENTAK [Concomitant]
     Dosage: 3 MG/KG, UNK
  43. HYDROMORPHONE HCL [Concomitant]
     Dosage: 4 MG, UNK
  44. CIPROFLOXACIN HCL [Concomitant]
     Dosage: 500 MG, UNK
  45. KYTRIL [Concomitant]
  46. VINORELBINE [Concomitant]
  47. POTASSIUM CHLORIDE [Concomitant]
  48. ALPRAZOLAM [Concomitant]
     Dosage: 0.5 MG, UNK
  49. PERCOCET [Concomitant]
     Dosage: 325 MG, UNK
  50. ROXICET [Concomitant]
     Dosage: 325 MG, UNK
  51. BIAXIN [Concomitant]
     Dosage: 500 MG, UNK
  52. DURAGESIC-100 [Concomitant]
     Dosage: 100 MG/H, UNK

REACTIONS (53)
  - EMOTIONAL DISTRESS [None]
  - SWELLING [None]
  - RADICULITIS [None]
  - METASTASES TO LUNG [None]
  - PANCREATIC CYST [None]
  - PARAESTHESIA [None]
  - HYPOKALAEMIA [None]
  - DYSURIA [None]
  - OSTEOPENIA [None]
  - DECREASED INTEREST [None]
  - HEPATIC STEATOSIS [None]
  - METASTASES TO PELVIS [None]
  - OSTEOLYSIS [None]
  - OSTEONECROSIS OF JAW [None]
  - INJURY [None]
  - INTERVERTEBRAL DISC DEGENERATION [None]
  - HIATUS HERNIA [None]
  - OSTEITIS DEFORMANS [None]
  - INTERVERTEBRAL DISC PROTRUSION [None]
  - RENAL CYST [None]
  - BREAST CANCER RECURRENT [None]
  - LUNG NEOPLASM [None]
  - METASTASES TO SPINE [None]
  - INTERVERTEBRAL DISC SPACE NARROWING [None]
  - PLATELET COUNT DECREASED [None]
  - SPLENOMEGALY [None]
  - PAIN IN EXTREMITY [None]
  - FOOD POISONING [None]
  - NAUSEA [None]
  - SPINAL COMPRESSION FRACTURE [None]
  - PAIN IN JAW [None]
  - MASS [None]
  - METASTASES TO BONE [None]
  - HYPOAESTHESIA [None]
  - FACET JOINT SYNDROME [None]
  - VERTEBRAL FORAMINAL STENOSIS [None]
  - HAEMATOMA [None]
  - VOMITING [None]
  - HEPATITIS C [None]
  - PULMONARY FIBROSIS [None]
  - BACK PAIN [None]
  - LYMPHADENOPATHY [None]
  - MALAISE [None]
  - FATIGUE [None]
  - ALOPECIA [None]
  - PAIN [None]
  - METASTASES TO LIVER [None]
  - SPONDYLOLISTHESIS [None]
  - OEDEMA [None]
  - NEUROPATHY PERIPHERAL [None]
  - THROMBOCYTOPENIA [None]
  - SPINAL OSTEOARTHRITIS [None]
  - PLEURAL EFFUSION [None]
